FAERS Safety Report 16522462 (Version 2)
Quarter: 2019Q3

REPORT INFORMATION
  Report Type: Spontaneous
  Country: US (occurrence: US)
  Receive Date: 20190703
  Receipt Date: 20190705
  Transmission Date: 20191004
  Serious: No
  Sender: FDA-Public Use
  Company Number: US-PFIZER INC-2019225807

PATIENT
  Age: 57 Year
  Sex: Male

DRUGS (4)
  1. GABAPENTIN. [Suspect]
     Active Substance: GABAPENTIN
     Indication: ARTHROPATHY
     Dosage: 3000 MG, 1X/DAY
     Dates: start: 20180823
  2. GABAPENTIN. [Suspect]
     Active Substance: GABAPENTIN
     Indication: MUSCLE DISORDER
  3. GABAPENTIN. [Suspect]
     Active Substance: GABAPENTIN
     Indication: NERVE INJURY
  4. GABAPENTIN. [Suspect]
     Active Substance: GABAPENTIN
     Indication: SPINAL OPERATION

REACTIONS (3)
  - Therapeutic product effect incomplete [Unknown]
  - Off label use [Unknown]
  - Product use in unapproved indication [Unknown]

NARRATIVE: CASE EVENT DATE: 20180823
